FAERS Safety Report 13022498 (Version 3)
Quarter: 2017Q1

REPORT INFORMATION
  Report Type: Spontaneous
  Country: IT (occurrence: IT)
  Receive Date: 20161213
  Receipt Date: 20170216
  Transmission Date: 20170428
  Serious: Yes (Other)
  Sender: FDA-Public Use
  Company Number: IT-PFIZER INC-2016565185

PATIENT
  Age: 72 Year
  Sex: Female

DRUGS (8)
  1. ZOLOFT [Suspect]
     Active Substance: SERTRALINE HYDROCHLORIDE
     Indication: DEPRESSION
     Dosage: 50 MG, DAILY
     Route: 048
     Dates: start: 20160704, end: 20161125
  2. ATENOLOL. [Concomitant]
     Active Substance: ATENOLOL
     Indication: HYPERTENSION
     Dosage: 100 MG, UNK
     Route: 048
     Dates: start: 20080101, end: 20161125
  3. DILTIAZEM. [Concomitant]
     Active Substance: DILTIAZEM
     Indication: HYPERTENSION
     Dosage: 240 MG, UNK
     Route: 048
  4. ZOPRANOL [Concomitant]
     Active Substance: ZOFENOPRIL
     Indication: HYPERTENSION
     Dosage: UNK
     Route: 048
  5. SONIREM [Concomitant]
     Active Substance: ZOLPIDEM TARTRATE
     Indication: INSOMNIA
     Dosage: UNK
     Route: 048
  6. COUMADIN [Interacting]
     Active Substance: WARFARIN SODIUM
     Indication: ATRIAL FIBRILLATION
     Dosage: UNK, DAILY
     Route: 048
     Dates: start: 20081216, end: 20161125
  7. LEVOBREN [Concomitant]
     Active Substance: LEVOSULPIRIDE
     Indication: DEPRESSION
     Dosage: 10 GTT, UNK
     Route: 048
  8. SAMYR /00882301/ [Concomitant]
     Active Substance: ADEMETIONINE
     Indication: DEPRESSION
     Dosage: UNK
     Route: 030

REACTIONS (4)
  - Drug interaction [Unknown]
  - Overdose [Unknown]
  - Anaemia [Unknown]
  - International normalised ratio increased [Unknown]

NARRATIVE: CASE EVENT DATE: 20161125
